FAERS Safety Report 6612900-2 (Version None)
Quarter: 2010Q1

REPORT INFORMATION
  Report Type: 
  Country: None (occurrence: None)
  Receive Date: 20100304
  Receipt Date: 20100217
  Transmission Date: 20100710
  Serious: Yes (Other)
  Sender: FDA-Public Use
  Company Number: GB-MYLANLABS-2010S1002702

PATIENT
  Age: 79 Year
  Sex: Male

DRUGS (7)
  1. LAMOTRIGINE [Suspect]
     Indication: CONVULSION
     Route: 048
     Dates: start: 20091214
  2. TEMAZEPAM [Suspect]
     Indication: INSOMNIA
     Route: 048
     Dates: start: 20091230
  3. DONEPEZIL HCL [Suspect]
     Indication: DEMENTIA ALZHEIMER'S TYPE
     Route: 048
     Dates: start: 20091114
  4. ZAPONEX [Suspect]
     Indication: PSYCHOTIC DISORDER
     Route: 048
     Dates: start: 20100118, end: 20100118
  5. ATENOLOL [Concomitant]
     Indication: CARDIAC DISORDER
     Route: 048
  6. CLOPIDOGREL [Concomitant]
     Indication: DRUG USE FOR UNKNOWN INDICATION
     Route: 048
  7. LISINOPRIL [Concomitant]
     Indication: HYPERTENSION
     Route: 048

REACTIONS (3)
  - HYPOXIA [None]
  - SOMNOLENCE [None]
  - UNRESPONSIVE TO STIMULI [None]
